FAERS Safety Report 8482099-9 (Version None)
Quarter: 2012Q3

REPORT INFORMATION
  Report Type: 
  Country: None (occurrence: None)
  Receive Date: 20120702
  Receipt Date: 20120702
  Transmission Date: 20120928
  Serious: Yes (Other)
  Sender: FDA-Public Use
  Company Number: US-PFIZER INC-880719-SK357

PATIENT
  Age: 28 Year
  Sex: Female

DRUGS (3)
  1. VERAPAMIL [Interacting]
     Indication: ARRHYTHMIA
     Dosage: 360 MG, 1X/DAY
     Route: 048
  2. VERAPAMIL HCL [Suspect]
  3. DIGOXIN [Interacting]
     Dosage: 2.5 MG, 1X/DAY
     Route: 048

REACTIONS (3)
  - DRUG INTERACTION [None]
  - FOETAL EXPOSURE DURING PREGNANCY [None]
  - FOETAL DEATH [None]
